FAERS Safety Report 9549609 (Version 1)
Quarter: 2013Q3

REPORT INFORMATION
  Report Type: Spontaneous
  Country: US (occurrence: US)
  Receive Date: 20130924
  Receipt Date: 20130924
  Transmission Date: 20140515
  Serious: No
  Sender: FDA-Public Use
  Company Number: US-009507513-1209USA000337

PATIENT
  Age: 16 Year
  Sex: Female
  Weight: 156.46 kg

DRUGS (1)
  1. MK-8415 [Suspect]
     Dosage: 1 DF, UNK
     Dates: start: 201205

REACTIONS (4)
  - Device difficult to use [Unknown]
  - Device deployment issue [Unknown]
  - Medical device complication [Unknown]
  - No adverse event [Unknown]
